FAERS Safety Report 6795399-5 (Version None)
Quarter: 2010Q2

REPORT INFORMATION
  Report Type: 
  Country: None (occurrence: None)
  Receive Date: 20100624
  Receipt Date: 20100624
  Transmission Date: 20101027
  Serious: Yes (Other)
  Sender: FDA-Public Use
  Company Number: None

PATIENT
  Sex: Female
  Weight: 93.441 kg

DRUGS (1)
  1. OXYCODONE HCL [Suspect]
     Indication: ROAD TRAFFIC ACCIDENT
     Dosage: Q12H 30 DAY SUPPLY P.O.
     Route: 048
     Dates: start: 19970521, end: 19970603

REACTIONS (1)
  - DRUG HYPERSENSITIVITY [None]
